FAERS Safety Report 10207891 (Version 1)
Quarter: 2014Q2

REPORT INFORMATION
  Report Type: Spontaneous
  Country: US (occurrence: None)
  Receive Date: 20140528
  Receipt Date: 20140528
  Transmission Date: 20141212
  Serious: No
  Sender: FDA-Public Use
  Company Number: None

PATIENT
  Age: 68 Year
  Sex: Male

DRUGS (1)
  1. HUMIRA 20MG/0.4ML ABBVIE [Suspect]
     Indication: PSORIASIS
     Dosage: 20MG?QOW?SQ
     Dates: start: 20140407

REACTIONS (4)
  - Chest discomfort [None]
  - Dry throat [None]
  - Cough [None]
  - Nasopharyngitis [None]
